FAERS Safety Report 26028202 (Version 1)
Quarter: 2025Q4

REPORT INFORMATION
  Report Type: Spontaneous
  Country: US (occurrence: US)
  Receive Date: 20251111
  Receipt Date: 20251111
  Transmission Date: 20260117
  Serious: No
  Sender: ORASIS PHARMACEUTICALS
  Company Number: US-ORASIS PHARMACEUTIALS-2025ORA00141

PATIENT
  Sex: Female

DRUGS (1)
  1. QLOSI [Suspect]
     Active Substance: PILOCARPINE HYDROCHLORIDE
     Dosage: 1 DROP INTO EACH EYE, DAILY. MAY REPEAT ONE TIME AFTER 2-3 HOURS.
     Route: 047

REACTIONS (3)
  - Drug ineffective [Unknown]
  - Headache [Not Recovered/Not Resolved]
  - Instillation site irritation [Unknown]
